FAERS Safety Report 7476954-6 (Version None)
Quarter: 2011Q2

REPORT INFORMATION
  Report Type: 
  Country: None (occurrence: None)
  Receive Date: 20110512
  Receipt Date: 20110506
  Transmission Date: 20111010
  Serious: Yes (Other)
  Sender: FDA-Public Use
  Company Number: JP-ABBOTT-11P-087-0721530-00

PATIENT
  Sex: Female

DRUGS (1)
  1. HUMIRA [Suspect]
     Indication: RHEUMATOID ARTHRITIS
     Route: 058
     Dates: start: 20091126, end: 20101112

REACTIONS (7)
  - LIP AND/OR ORAL CAVITY CANCER [None]
  - NEOPLASM SKIN [None]
  - FACIAL PARESIS [None]
  - ERYTHEMA [None]
  - NASAL NEOPLASM [None]
  - LIPODYSTROPHY ACQUIRED [None]
  - SKIN ATROPHY [None]
